FAERS Safety Report 24432690 (Version 9)
Quarter: 2024Q4

REPORT INFORMATION
  Report Type: Spontaneous
  Country: IL (occurrence: IL)
  Receive Date: 20241014
  Receipt Date: 20241216
  Transmission Date: 20250114
  Serious: Yes (Hospitalization, Other)
  Sender: BAXTER
  Company Number: IL-BAXTER-2024BAX025069

PATIENT
  Age: 69 Year
  Sex: Male
  Weight: 68 kg

DRUGS (53)
  1. CYCLOPHOSPHAMIDE [Suspect]
     Active Substance: CYCLOPHOSPHAMIDE
     Indication: Diffuse large B-cell lymphoma stage IV
     Dosage: 750 MG/M2, C1D1, LAST DATE PRIOR TO EVENT ONSET DATE
     Route: 042
     Dates: start: 20240909, end: 20240909
  2. CYCLOPHOSPHAMIDE [Suspect]
     Active Substance: CYCLOPHOSPHAMIDE
     Dosage: 562 MG/M2, C2D1-ONWARDS, ONGOING
     Route: 042
     Dates: start: 20240929
  3. CYCLOPHOSPHAMIDE [Suspect]
     Active Substance: CYCLOPHOSPHAMIDE
     Dosage: 562 MG/M2
     Route: 065
     Dates: start: 20241020
  4. DOXORUBICIN [Suspect]
     Active Substance: DOXORUBICIN
     Indication: Diffuse large B-cell lymphoma stage IV
     Dosage: 50 MG/M2, C1D1, LAST DATE PRIOR TO EVENT ONSET DATE, DOSAGE FORM: SOLUTION FOR INFUSION
     Route: 042
     Dates: start: 20240909, end: 20240909
  5. DOXORUBICIN [Suspect]
     Active Substance: DOXORUBICIN
     Dosage: 37.5 MG/M2, C2D1-C3D1, ONGOING
     Route: 042
     Dates: start: 20240929
  6. DOXORUBICIN [Suspect]
     Active Substance: DOXORUBICIN
     Dosage: 68 MG/M2
     Route: 065
     Dates: start: 20241020
  7. MESNA [Suspect]
     Active Substance: MESNA
     Dosage: UNK
     Route: 065
     Dates: start: 20240909, end: 20240909
  8. EPCORITAMAB [Suspect]
     Active Substance: EPCORITAMAB
     Indication: Diffuse large B-cell lymphoma stage IV
     Dosage: PRIMING DOSE OF 0.16 MG, C1D1
     Route: 058
     Dates: start: 20240909, end: 20240909
  9. EPCORITAMAB [Suspect]
     Active Substance: EPCORITAMAB
     Dosage: RE-PRIMING DOSE OF 0.16 MG, (RP1D1).
     Route: 058
     Dates: start: 20240922, end: 20240922
  10. EPCORITAMAB [Suspect]
     Active Substance: EPCORITAMAB
     Dosage: RE-PRIMING INTERMEDIATE DOSE OF 0.8 MG, RP1D8
     Route: 058
     Dates: start: 20240929, end: 20240929
  11. EPCORITAMAB [Suspect]
     Active Substance: EPCORITAMAB
     Dosage: UNK, RP1D15, ONGOING
     Route: 058
     Dates: start: 20241006
  12. EPCORITAMAB [Suspect]
     Active Substance: EPCORITAMAB
     Dosage: FULL DOSE OF 48 MG
     Route: 065
     Dates: start: 20241006
  13. EPCORITAMAB [Suspect]
     Active Substance: EPCORITAMAB
     Dosage: 48 MG, C2D8
     Route: 065
     Dates: start: 20241020
  14. EPCORITAMAB [Suspect]
     Active Substance: EPCORITAMAB
     Dosage: 48 MG: CYCLE 1 TO CYCLE 6, R-CHOP ON 3-WEEK CYCLE (21 DAYS) (DAY 1)
     Route: 065
  15. RITUXIMAB [Suspect]
     Active Substance: RITUXIMAB
     Indication: Diffuse large B-cell lymphoma stage IV
     Dosage: 375 MG/M2, C1D1
     Route: 042
     Dates: start: 20240908, end: 20240909
  16. RITUXIMAB [Suspect]
     Active Substance: RITUXIMAB
     Dosage: 375 MG/M2, C2D1-ONWARDS, ONGOING
     Route: 042
     Dates: start: 20240929
  17. RITUXIMAB [Suspect]
     Active Substance: RITUXIMAB
     Dosage: 375 MG/M2
     Route: 065
     Dates: start: 20241020
  18. VINCRISTINE [Suspect]
     Active Substance: VINCRISTINE
     Indication: Diffuse large B-cell lymphoma stage IV
     Dosage: 1.4 MG/M2, C1D1 (RECOMMENDED CAP OF 2 MG), ONGOING
     Route: 042
     Dates: start: 20240909, end: 20240909
  19. VINCRISTINE [Suspect]
     Active Substance: VINCRISTINE
     Dosage: 1.4 MG/M2, C2D1
     Route: 065
     Dates: start: 20240929
  20. VINCRISTINE [Suspect]
     Active Substance: VINCRISTINE
     Dosage: 2 MG/M2
     Route: 065
     Dates: start: 20241020
  21. PREDNISONE [Suspect]
     Active Substance: PREDNISONE
     Indication: Diffuse large B-cell lymphoma stage IV
     Dosage: 100 MILLIGRAM, QD, TOTAL
     Route: 048
     Dates: start: 20240909, end: 20240912
  22. PREDNISONE [Suspect]
     Active Substance: PREDNISONE
     Dosage: 100 MG, QD
     Route: 048
     Dates: start: 20240929, end: 20241002
  23. PREDNISONE [Suspect]
     Active Substance: PREDNISONE
     Dosage: 100 MG, TOTAL
     Route: 048
     Dates: start: 20241020, end: 20241020
  24. PREDNISONE [Suspect]
     Active Substance: PREDNISONE
     Dosage: 100 MG, QD
     Route: 048
     Dates: start: 20241021, end: 20241024
  25. PHENERGAN [Concomitant]
     Active Substance: PROMETHAZINE HYDROCHLORIDE
     Dosage: 50 MG
     Route: 065
     Dates: start: 20240909, end: 20240909
  26. ACETAMINOPHEN [Concomitant]
     Active Substance: ACETAMINOPHEN
     Dosage: 1000 MG
     Route: 048
     Dates: start: 20240908, end: 20240909
  27. ACETAMINOPHEN [Concomitant]
     Active Substance: ACETAMINOPHEN
     Dosage: 1000 MG
     Route: 048
     Dates: start: 20240922, end: 20240922
  28. ACETAMINOPHEN [Concomitant]
     Active Substance: ACETAMINOPHEN
     Dosage: 1000 MG
     Route: 048
     Dates: start: 20241020, end: 20241020
  29. DEXAMETHASONE [Concomitant]
     Active Substance: DEXAMETHASONE
     Indication: Prophylaxis
     Dosage: 15 MG
     Route: 048
     Dates: start: 20241006, end: 20241009
  30. DEXAMETHASONE [Concomitant]
     Active Substance: DEXAMETHASONE
     Dosage: UNK, ONGOING
     Route: 065
     Dates: start: 20241006
  31. DEXAMETHASONE [Concomitant]
     Active Substance: DEXAMETHASONE
     Dosage: 15 MG
     Route: 042
     Dates: start: 20241013
  32. DEXAMETHASONE [Concomitant]
     Active Substance: DEXAMETHASONE
     Dosage: 15 MG
     Route: 048
     Dates: start: 20241014
  33. Fenergan [Concomitant]
     Dosage: UNK
     Route: 065
     Dates: start: 20240908, end: 20240908
  34. Fenergan [Concomitant]
     Dosage: 25 MG
     Route: 048
     Dates: start: 20240922, end: 20240922
  35. LORATADINE [Concomitant]
     Active Substance: LORATADINE
     Dosage: 10 MG
     Route: 048
     Dates: start: 20240908, end: 20240908
  36. LORATADINE [Concomitant]
     Active Substance: LORATADINE
     Dosage: 10 MG
     Route: 048
     Dates: start: 20241020, end: 20241020
  37. PREDNISONE [Concomitant]
     Active Substance: PREDNISONE
     Dosage: UNK
     Route: 065
     Dates: start: 20240826, end: 20240909
  38. GENTAMICIN [Concomitant]
     Active Substance: GENTAMICIN
  39. ALLOPURINOL [Concomitant]
     Active Substance: ALLOPURINOL
     Dosage: UNK, ONGOING
     Route: 065
     Dates: start: 20240809
  40. PANTOPRAZOLE [Concomitant]
     Active Substance: PANTOPRAZOLE
     Dosage: UNK, ONGOING
     Route: 065
     Dates: start: 20240915
  41. ACYCLOVIR [Concomitant]
     Active Substance: ACYCLOVIR
     Dosage: UNK, ONGOING
     Route: 065
     Dates: start: 20240909
  42. DISEPTYL FORTE [Concomitant]
     Dosage: UNK, ONGOING
     Route: 065
     Dates: start: 20240909
  43. PEGFILGRASTIM [Concomitant]
     Active Substance: PEGFILGRASTIM
     Dosage: UNK
     Route: 065
     Dates: start: 20240911, end: 20240911
  44. MORPHINE [Concomitant]
     Active Substance: MORPHINE
     Dosage: UNK
     Route: 065
     Dates: start: 20240908, end: 20240908
  45. MORPHINE [Concomitant]
     Active Substance: MORPHINE
     Dosage: UNK
     Route: 065
     Dates: start: 20241006, end: 20241006
  46. DIPYRONE [Concomitant]
     Active Substance: DIPYRONE
     Dosage: UNK, ONGOING
     Route: 065
     Dates: start: 20240908
  47. SODIUM CHLORIDE [Concomitant]
     Active Substance: SODIUM CHLORIDE
     Dosage: UNK
     Route: 065
     Dates: start: 20240909, end: 20240909
  48. Avilac [Concomitant]
     Dosage: UNK, ONGOING
     Route: 065
     Dates: start: 20240909
  49. REMDESIVIR [Concomitant]
     Active Substance: REMDESIVIR
     Dosage: UNK
     Route: 065
     Dates: start: 20240916, end: 20240916
  50. PAXLOVID [Concomitant]
     Active Substance: NIRMATRELVIR\RITONAVIR
     Dosage: UNK
     Route: 065
     Dates: start: 20240916, end: 20240921
  51. CALTRATE WITH VITAMIN D [Concomitant]
     Active Substance: CALCIUM CARBONATE\CHOLECALCIFEROL
     Dosage: UNK
     Route: 065
     Dates: start: 20240919, end: 20240919
  52. SODIUM PHOSPHATE [Concomitant]
     Active Substance: SODIUM PHOSPHATE
     Dosage: UNK
     Route: 065
     Dates: start: 20240918, end: 20240919
  53. POTASSIUM CHLORIDE [Concomitant]
     Active Substance: POTASSIUM CHLORIDE
     Dosage: UNK
     Dates: start: 20241029, end: 20241029

REACTIONS (7)
  - Febrile neutropenia [Recovered/Resolved]
  - Pyrexia [Unknown]
  - Chills [Unknown]
  - Febrile neutropenia [Recovered/Resolved]
  - Pyrexia [Recovering/Resolving]
  - COVID-19 [Unknown]
  - Sinus tachycardia [Unknown]

NARRATIVE: CASE EVENT DATE: 20240915
